FAERS Safety Report 5147073-9 (Version None)
Quarter: 2006Q4

REPORT INFORMATION
  Report Type: 
  Country: None (occurrence: None)
  Receive Date: 20061103
  Receipt Date: 20061026
  Transmission Date: 20070319
  Serious: Yes (Death)
  Sender: FDA-Public Use
  Company Number: 2006JP003000

PATIENT
  Age: 92 Year
  Sex: Female

DRUGS (4)
  1. VESICARE [Suspect]
     Indication: HYPERTONIC BLADDER
     Dosage: SEE IMAGE
     Route: 048
     Dates: start: 20060627, end: 20060711
  2. VESICARE [Suspect]
     Indication: HYPERTONIC BLADDER
     Dosage: SEE IMAGE
     Route: 048
     Dates: start: 20060712, end: 20060822
  3. BLOPRESS (CANDESARTAN CILEXETIL) [Concomitant]
  4. NEUQUINON (UBIDECARENONE) [Concomitant]

REACTIONS (17)
  - ABDOMINAL PAIN [None]
  - ARRHYTHMIA [None]
  - ATRIOVENTRICULAR BLOCK THIRD DEGREE [None]
  - BLOOD PRESSURE SYSTOLIC INCREASED [None]
  - CARDIAC FAILURE CONGESTIVE [None]
  - CHEST DISCOMFORT [None]
  - DEPRESSED LEVEL OF CONSCIOUSNESS [None]
  - HEART RATE DECREASED [None]
  - HEPATIC FUNCTION ABNORMAL [None]
  - HYPERTENSION [None]
  - LOSS OF CONSCIOUSNESS [None]
  - OEDEMA [None]
  - REFUSAL OF TREATMENT BY RELATIVE [None]
  - RENAL IMPAIRMENT [None]
  - SINUS ARREST [None]
  - TREMOR [None]
  - VENTRICULAR TACHYCARDIA [None]
